FAERS Safety Report 5101902-3 (Version None)
Quarter: 2006Q3

REPORT INFORMATION
  Report Type: 
  Country: None (occurrence: None)
  Receive Date: 20060907
  Receipt Date: 20060829
  Transmission Date: 20061208
  Serious: Yes (Other)
  Sender: FDA-Public Use
  Company Number: CRTC-PR-0608S-0002

PATIENT
  Age: 69 Year
  Sex: Female

DRUGS (2)
  1. CERETEC [Suspect]
     Indication: OSTEOPOROSIS
     Dosage: SINGLE DOSE, I.V.
     Route: 042
     Dates: start: 20060825, end: 20060825
  2. TECHNETIUM (TC99M) GENERATOR (MANF. UNKNOWN) SODIUM PERTECHNETATE TC99 [Concomitant]

REACTIONS (1)
  - BLOOD CREATININE INCREASED [None]
